FAERS Safety Report 5129520-1 (Version None)
Quarter: 2006Q4

REPORT INFORMATION
  Report Type: 
  Country: None (occurrence: None)
  Receive Date: 20061012
  Receipt Date: 20061005
  Transmission Date: 20070319
  Serious: Yes (Other)
  Sender: FDA-Public Use
  Company Number: 147362USA

PATIENT
  Age: 61 Year
  Sex: Male

DRUGS (6)
  1. COPAXONE [Suspect]
  2. INTERFERON BETA-1A [Suspect]
  3. MITOXANTRONE [Suspect]
  4. GLUCOCORTICOIDS [Suspect]
  5. MYCOPHENOLATE MOFETIL [Suspect]
  6. RITUXIMAB [Suspect]

REACTIONS (1)
  - PANCREATIC CARCINOMA [None]
